FAERS Safety Report 8321617-8 (Version None)
Quarter: 2012Q2

REPORT INFORMATION
  Report Type: 
  Country: None (occurrence: None)
  Receive Date: 20120430
  Receipt Date: 20120417
  Transmission Date: 20120825
  Serious: Yes (Life-Threatening, Hospitalization)
  Sender: FDA-Public Use
  Company Number: DK-NOVOPROD-343865

PATIENT
  Age: 87 Year
  Sex: Female
  Weight: 60 kg

DRUGS (5)
  1. LANTUS [Concomitant]
     Indication: TYPE 2 DIABETES MELLITUS
     Dosage: UNK
     Dates: start: 20091214, end: 20111220
  2. NOVORAPID [Concomitant]
     Indication: TYPE 2 DIABETES MELLITUS
  3. VICTOZA [Suspect]
     Indication: TYPE 2 DIABETES MELLITUS
     Dosage: UNKNOWN
     Route: 058
     Dates: start: 20111219, end: 20111220
  4. METFORMIN HCL [Concomitant]
     Indication: TYPE 2 DIABETES MELLITUS
     Dosage: UNK
     Dates: start: 20090430, end: 20111227
  5. ACTRAPID [Concomitant]
     Indication: TYPE 2 DIABETES MELLITUS
     Dosage: UNK
     Dates: start: 20090427, end: 20111220

REACTIONS (4)
  - MALAISE [None]
  - DIABETIC KETOACIDOSIS [None]
  - NAUSEA [None]
  - THIRST [None]
